FAERS Safety Report 6651039-7 (Version None)
Quarter: 2010Q1

REPORT INFORMATION
  Report Type: 
  Country: None (occurrence: None)
  Receive Date: 20100322
  Receipt Date: 20100306
  Transmission Date: 20100710
  Serious: Yes (Other)
  Sender: FDA-Public Use
  Company Number: AUR-APL-2010-00689

PATIENT
  Age: 27 Year
  Sex: Female
  Weight: 78 kg

DRUGS (4)
  1. GABAPENTIN [Suspect]
     Indication: CONVULSION
     Dosage: 56GM - ONE TIME
  2. TOPIRAMATE [Suspect]
     Indication: CONVULSION
     Dosage: 2 GM - ONE TIME
  3. LACOSAMIDE [Suspect]
     Indication: CONVULSION
     Dosage: 12 GM - ONE TIME
  4. ZONISAMIDE [Suspect]
     Indication: CONVULSION
     Dosage: 2.8 GM - ONE TIME

REACTIONS (15)
  - ACIDOSIS [None]
  - AREFLEXIA [None]
  - ATRIOVENTRICULAR BLOCK FIRST DEGREE [None]
  - BLOOD POTASSIUM DECREASED [None]
  - BLOOD PRESSURE DECREASED [None]
  - COMA [None]
  - DRUG TOXICITY [None]
  - ELECTROCARDIOGRAM PR PROLONGATION [None]
  - ENCEPHALOPATHY [None]
  - GRAND MAL CONVULSION [None]
  - MULTIPLE DRUG OVERDOSE INTENTIONAL [None]
  - PNEUMONIA ASPIRATION [None]
  - PYREXIA [None]
  - SUICIDE ATTEMPT [None]
  - VOMITING [None]
